FAERS Safety Report 18384702 (Version 2)
Quarter: 2021Q1

REPORT INFORMATION
  Report Type: Report from Study
  Country: CR (occurrence: CR)
  Receive Date: 20201015
  Receipt Date: 20210327
  Transmission Date: 20210419
  Serious: Yes (Other)
  Sender: FDA-Public Use
  Company Number: NVSC2020CR274324

PATIENT
  Age: 69 Year
  Sex: Male

DRUGS (1)
  1. GALVUS MET [Suspect]
     Active Substance: METFORMIN HYDROCHLORIDE\VILDAGLIPTIN
     Indication: PRODUCT USED FOR UNKNOWN INDICATION
     Dosage: 1 DF,STARTED MORE THAN 3 YEARS
     Route: 065

REACTIONS (4)
  - Diabetes mellitus [Unknown]
  - Blood glucose increased [Unknown]
  - Malaise [Unknown]
  - Sleep disorder [Unknown]
